FAERS Safety Report 5358259-2 (Version None)
Quarter: 2007Q2

REPORT INFORMATION
  Report Type: 
  Country: None (occurrence: None)
  Receive Date: 20070530
  Receipt Date: 20061018
  Transmission Date: 20071010
  Serious: Yes (Hospitalization)
  Sender: FDA-Public Use
  Company Number: US200603002423

PATIENT
  Age: 49 Year
  Sex: Male
  Weight: 73.5 kg

DRUGS (7)
  1. ZYPREXA [Suspect]
     Indication: SCHIZOPHRENIA
     Dosage: 5 MG
     Dates: start: 20000101, end: 20020101
  2. VIRACEPT [Concomitant]
  3. PREDNISONE TAB [Concomitant]
  4. LITHIUM CARBONATE [Concomitant]
  5. NORVIR [Concomitant]
  6. LIPITOR [Concomitant]
  7. FORTOVASE /GFR/ (SAQUINAVIR) [Concomitant]

REACTIONS (3)
  - BLOOD CHOLESTEROL INCREASED [None]
  - DIABETES MELLITUS [None]
  - HYPOGLYCAEMIA [None]
